FAERS Safety Report 24695528 (Version 1)
Quarter: 2024Q4

REPORT INFORMATION
  Report Type: Spontaneous
  Country: BE (occurrence: BE)
  Receive Date: 20241204
  Receipt Date: 20241204
  Transmission Date: 20250115
  Serious: Yes (Other)
  Sender: ALKEM
  Company Number: BE-ALKEM LABORATORIES LIMITED-BE-ALKEM-2024-10160

PATIENT
  Age: 45 Year
  Sex: Male

DRUGS (13)
  1. MYCOPHENOLATE MOFETIL [Interacting]
     Active Substance: MYCOPHENOLATE MOFETIL
     Indication: Immunosuppressant drug therapy
     Dosage: 500 MILLIGRAM, BID
     Route: 065
  2. TACROLIMUS [Interacting]
     Active Substance: TACROLIMUS
     Indication: Immunosuppressant drug therapy
     Dosage: 0.25 MILLIGRAM/KILOGRAM, OD (ER-EXTENDED RELEASE)
     Route: 065
  3. TACROLIMUS [Interacting]
     Active Substance: TACROLIMUS
     Dosage: 0.5 MILLIGRAM (SINGLE DOSE) (ON DAY 47) (MAINTENANCE DOSE) (UNTIL DAY 90) (EVERY 8 DAYS)
     Route: 065
  4. TACROLIMUS [Interacting]
     Active Substance: TACROLIMUS
     Dosage: UNK (DOSE REDUCED) (ON DAY 3)
     Route: 065
  5. TACROLIMUS [Interacting]
     Active Substance: TACROLIMUS
     Dosage: UNK
     Route: 065
  6. TACROLIMUS [Interacting]
     Active Substance: TACROLIMUS
     Dosage: UNK (TACROLIMUS DISCONTINUED)
     Route: 065
  7. LOPINAVIR\RITONAVIR [Interacting]
     Active Substance: LOPINAVIR\RITONAVIR
     Indication: Antiretroviral therapy
     Dosage: 600/150 MILLIGRAM, BID
     Route: 065
  8. LAMIVUDINE [Interacting]
     Active Substance: LAMIVUDINE
     Indication: Antiretroviral therapy
     Dosage: 300 MILLIGRAM, OD
     Route: 065
  9. NEVIRAPINE [Interacting]
     Active Substance: NEVIRAPINE
     Indication: Antiretroviral therapy
     Dosage: 200 MILLIGRAM, BID
     Route: 065
  10. PREDNISOLONE [Interacting]
     Active Substance: PREDNISOLONE
     Indication: Immunosuppressant drug therapy
     Dosage: UNK
     Route: 065
  11. RALTEGRAVIR [Interacting]
     Active Substance: RALTEGRAVIR
     Indication: Antiretroviral therapy
     Dosage: 400 MILLIGRAM, BID
     Route: 065
  12. ASPIRIN [Concomitant]
     Active Substance: ASPIRIN
     Indication: Product used for unknown indication
     Dosage: UNK
     Route: 065
  13. Trimethoprime-sulfamethoxazole [Concomitant]
     Indication: Prophylaxis
     Dosage: 800-160 MILLIGRAM (THREE TIMES A WEEK)
     Route: 065

REACTIONS (7)
  - Herpes oesophagitis [Unknown]
  - Fungal oesophagitis [Unknown]
  - Drug interaction [Unknown]
  - Toxicity to various agents [Unknown]
  - Tremor [Unknown]
  - Drug level increased [Unknown]
  - Overdose [Unknown]
